FAERS Safety Report 10994618 (Version 2)
Quarter: 2016Q2

REPORT INFORMATION
  Report Type: Spontaneous
  Country: US (occurrence: US)
  Receive Date: 20150407
  Receipt Date: 20160412
  Transmission Date: 20160815
  Serious: Yes (Other)
  Sender: FDA-Public Use
  Company Number: US-ROCHE-1560590

PATIENT
  Sex: Male

DRUGS (1)
  1. ERIVEDGE [Suspect]
     Active Substance: VISMODEGIB
     Indication: SQUAMOUS CELL CARCINOMA OF SKIN
     Dosage: ON 28/OCT/2015, HE RECEIVED THE SAME DOSE.
     Route: 048
     Dates: start: 20140114

REACTIONS (2)
  - Weight decreased [Unknown]
  - Lung disorder [Unknown]
